FAERS Safety Report 17335121 (Version 1)
Quarter: 2020Q1

REPORT INFORMATION
  Report Type: Spontaneous
  Country: US (occurrence: US)
  Receive Date: 20200128
  Receipt Date: 20200128
  Transmission Date: 20200409
  Serious: No
  Sender: FDA-Public Use
  Company Number: US-ASTRAZENECA-2020SE00923

PATIENT
  Sex: Female
  Weight: 59 kg

DRUGS (1)
  1. SYMBICORT [Suspect]
     Active Substance: BUDESONIDE\FORMOTEROL FUMARATE DIHYDRATE
     Indication: ASTHMA
     Dosage: 80/4.5MCG 2 PUFFS TWICE A DAY
     Route: 055

REACTIONS (5)
  - Oropharyngeal discomfort [Unknown]
  - Cough [Unknown]
  - Candida infection [Unknown]
  - Aspergillus infection [Unknown]
  - Product use issue [Unknown]
